FAERS Safety Report 25467589 (Version 1)
Quarter: 2025Q2

REPORT INFORMATION
  Report Type: Spontaneous
  Country: US (occurrence: None)
  Receive Date: 20250621
  Receipt Date: 20250621
  Transmission Date: 20250716
  Serious: Yes (Life-Threatening, Hospitalization)
  Sender: FDA-CTU
  Company Number: None

PATIENT
  Age: 46 Year
  Sex: Female
  Weight: 89.55 kg

DRUGS (4)
  1. ZEPBOUND [Suspect]
     Active Substance: TIRZEPATIDE
     Indication: Weight decreased
     Route: 050
     Dates: start: 20250615, end: 20250615
  2. WELLBUTRIN [Concomitant]
     Active Substance: BUPROPION HYDROCHLORIDE
  3. Merena IUD [Concomitant]
  4. SUBOXONE [Concomitant]
     Active Substance: BUPRENORPHINE HYDROCHLORIDE\NALOXONE HYDROCHLORIDE

REACTIONS (1)
  - Anaphylactic reaction [None]

NARRATIVE: CASE EVENT DATE: 20250615
